FAERS Safety Report 8572539-9 (Version None)
Quarter: 2012Q3

REPORT INFORMATION
  Report Type: 
  Country: None (occurrence: None)
  Receive Date: 20120806
  Receipt Date: 20120726
  Transmission Date: 20120928
  Serious: Yes (Other)
  Sender: FDA-Public Use
  Company Number: CA-ASTRAZENECA-2012SE51271

PATIENT
  Age: 70 Year
  Sex: Female

DRUGS (4)
  1. CRESTOR [Suspect]
     Route: 048
     Dates: start: 20081001
  2. OCCUVIR [Concomitant]
  3. CRESTOR [Suspect]
     Route: 048
     Dates: start: 20100801
  4. ASPIRIN [Concomitant]
     Indication: CEREBROVASCULAR ACCIDENT
     Route: 048
     Dates: start: 20050101

REACTIONS (1)
  - TINNITUS [None]
